FAERS Safety Report 15148744 (Version 1)
Quarter: 2018Q3

REPORT INFORMATION
  Report Type: Spontaneous
  Country: US (occurrence: US)
  Receive Date: 20180619
  Receipt Date: 20180619
  Transmission Date: 20181010
  Serious: No
  Sender: FDA-Public Use
  Company Number: None

PATIENT
  Age: 54 Year
  Sex: Female

DRUGS (1)
  1. HYQVIA [Suspect]
     Active Substance: HUMAN IMMUNOGLOBULIN G\HYALURONIDASE RECOMBINANT HUMAN
     Indication: PRODUCT USED FOR UNKNOWN INDICATION
     Dosage: ?          OTHER FREQUENCY:ON WEEK 4;?
     Route: 058
     Dates: start: 20180308, end: 20180330

REACTIONS (5)
  - Genital swelling [None]
  - Swelling [None]
  - Erythema [None]
  - Skin warm [None]
  - Pruritus [None]

NARRATIVE: CASE EVENT DATE: 20180330
